FAERS Safety Report 7777299-7 (Version None)
Quarter: 2011Q3

REPORT INFORMATION
  Report Type: 
  Country: None (occurrence: None)
  Receive Date: 20110926
  Receipt Date: 20110921
  Transmission Date: 20111222
  Serious: Yes (Hospitalization, Disabling, Other)
  Sender: FDA-Public Use
  Company Number: PHHY2011CA74374

PATIENT
  Sex: Male

DRUGS (6)
  1. CLOZAPINE [Suspect]
     Indication: PSYCHOTIC DISORDER
  2. CLOZAPINE [Suspect]
     Indication: SCHIZOAFFECTIVE DISORDER
     Dosage: 100 MG Q HS, 25 MG PO Q AM
     Route: 048
     Dates: start: 20110601, end: 20110921
  3. DIVALPROEX SODIUM [Concomitant]
     Dosage: 500 MG, Q HS
     Route: 048
  4. HYDROXYZINE [Concomitant]
     Dosage: 50 MG 2 TABS HS
  5. RISPERIDONE [Concomitant]
     Dosage: 2 MG, HS
     Route: 048
  6. TECTA [Concomitant]
     Dosage: 40 MG, UNK
     Route: 048

REACTIONS (3)
  - WEIGHT DECREASED [None]
  - SKIN DISCOLOURATION [None]
  - DIARRHOEA [None]
